FAERS Safety Report 13833484 (Version 1)
Quarter: 2017Q3

REPORT INFORMATION
  Report Type: Spontaneous
  Country: US (occurrence: US)
  Receive Date: 20170803
  Receipt Date: 20170803
  Transmission Date: 20171127
  Serious: No
  Sender: FDA-Public Use
  Company Number: US-ENDO PHARMACEUTICALS INC-2017-000536

PATIENT
  Age: 4 Month
  Sex: Female

DRUGS (1)
  1. NYSTATIN SUSPENSION [Suspect]
     Active Substance: NYSTATIN
     Indication: PRODUCT USED FOR UNKNOWN INDICATION
     Dosage: UNK UNK, UNKNOWN
     Route: 065

REACTIONS (3)
  - Screaming [Unknown]
  - Abdominal pain [Unknown]
  - Diarrhoea [Unknown]
